FAERS Safety Report 6271821-8 (Version None)
Quarter: 2009Q3

REPORT INFORMATION
  Report Type: 
  Country: None (occurrence: None)
  Receive Date: 20090717
  Receipt Date: 20090709
  Transmission Date: 20100115
  Serious: Yes (Hospitalization, Other)
  Sender: FDA-Public Use
  Company Number: US-PFIZER INC-2009239103

PATIENT
  Sex: Female
  Weight: 104.31 kg

DRUGS (3)
  1. NORVASC [Suspect]
     Indication: HYPERTENSION
     Dates: end: 20090301
  2. EFFEXOR [Concomitant]
     Dosage: UNK
  3. XANAX [Concomitant]
     Dosage: UNK

REACTIONS (2)
  - CONCUSSION [None]
  - FALL [None]
